FAERS Safety Report 8846909 (Version 1)
Quarter: 2012Q4

REPORT INFORMATION
  Report Type: 
  Country: US (occurrence: US)
  Receive Date: 20121018
  Receipt Date: 20121018
  Transmission Date: 20130627
  Serious: Yes (Other)
  Sender: FDA-Public Use
  Company Number: US-PFIZER INC-2012255125

PATIENT
  Age: 88 Year
  Sex: Female
  Weight: 46.26 kg

DRUGS (2)
  1. TOVIAZ [Suspect]
     Indication: HYPERTONIC BLADDER
     Dosage: 4 mg,daily
     Dates: start: 2012, end: 201210
  2. TOVIAZ [Suspect]
     Dosage: UNK
     Dates: start: 20121013, end: 20121013

REACTIONS (2)
  - Macular degeneration [Unknown]
  - Vision blurred [Unknown]
